FAERS Safety Report 7446159-3 (Version None)
Quarter: 2011Q2

REPORT INFORMATION
  Report Type: 
  Country: None (occurrence: None)
  Receive Date: 20110429
  Receipt Date: 20110422
  Transmission Date: 20111010
  Serious: Yes (Hospitalization)
  Sender: FDA-Public Use
  Company Number: B0715550A

PATIENT
  Sex: Female
  Weight: 62 kg

DRUGS (14)
  1. ALKERAN [Suspect]
     Indication: STEM CELL TRANSPLANT
     Dosage: 220MG PER DAY
     Route: 042
     Dates: start: 20101006, end: 20101006
  2. CYMERIN [Suspect]
     Indication: STEM CELL TRANSPLANT
     Dosage: 470MG PER DAY
     Route: 042
     Dates: start: 20101001, end: 20101001
  3. MERISLON [Concomitant]
     Dosage: 18MG PER DAY
     Route: 048
     Dates: start: 20101001, end: 20101015
  4. LANSOPRAZOLE [Concomitant]
     Dosage: 15MG PER DAY
     Route: 048
     Dates: start: 20101002, end: 20101025
  5. URSO 250 [Concomitant]
     Dosage: 600MG PER DAY
     Route: 048
     Dates: start: 20101001, end: 20101015
  6. FUROSEMIDE [Concomitant]
     Dosage: 20MG PER DAY
     Route: 042
     Dates: start: 20101002, end: 20101022
  7. RAMELTEON [Concomitant]
     Dosage: .3MG PER DAY
     Route: 042
     Dates: start: 20101001, end: 20101006
  8. PURSENNID [Concomitant]
     Dosage: 24MG PER DAY
     Route: 048
     Dates: start: 20101001, end: 20101007
  9. DECADRON [Concomitant]
     Dosage: .5MG PER DAY
     Route: 048
     Dates: start: 20101005, end: 20101008
  10. VEPESID [Suspect]
     Indication: STEM CELL TRANSPLANT
     Dosage: 314MG PER DAY
     Route: 042
     Dates: start: 20101002, end: 20101005
  11. CYLOCIDE [Concomitant]
     Indication: STEM CELL TRANSPLANT
     Dosage: 628MG PER DAY
     Route: 042
     Dates: start: 20101002, end: 20101005
  12. STARSIS [Concomitant]
     Dosage: 270MG PER DAY
     Route: 048
     Dates: start: 20101001, end: 20101108
  13. EMEND [Concomitant]
     Dosage: 80MG PER DAY
     Route: 048
     Dates: start: 20101005, end: 20101008
  14. FUNGUARD [Concomitant]
     Dosage: 50MG PER DAY
     Route: 042
     Dates: start: 20101002, end: 20101025

REACTIONS (2)
  - DIARRHOEA [None]
  - FEBRILE NEUTROPENIA [None]
